FAERS Safety Report 23661528 (Version 1)
Quarter: 2024Q1

REPORT INFORMATION
  Report Type: Other
  Country: CN (occurrence: CN)
  Receive Date: 20240322
  Receipt Date: 20240322
  Transmission Date: 20240410
  Serious: Yes (Other)
  Sender: FDA-Public Use
  Company Number: CN-ASTELLAS-2024US008506

PATIENT
  Age: 41 Year
  Sex: Male

DRUGS (2)
  1. ISAVUCONAZOLE [Suspect]
     Active Substance: ISAVUCONAZOLE
     Indication: Fungal infection
     Dosage: 0.2 G, THRICE DAILY (LOADING DOSE)
     Route: 041
     Dates: start: 20240226, end: 20240227
  2. ISAVUCONAZOLE [Suspect]
     Active Substance: ISAVUCONAZOLE
     Dosage: 0.2 G, ONCE DAILY (MAINTENANCE DOSE)
     Route: 041
     Dates: start: 20240228, end: 20240308

REACTIONS (2)
  - Retinal haemorrhage [Not Recovered/Not Resolved]
  - Off label use [Unknown]

NARRATIVE: CASE EVENT DATE: 20240226
